FAERS Safety Report 7733179-4 (Version None)
Quarter: 2011Q3

REPORT INFORMATION
  Report Type: 
  Country: None (occurrence: None)
  Receive Date: 20110902
  Receipt Date: 20110902
  Transmission Date: 20111222
  Serious: Yes (Other)
  Sender: FDA-Public Use
  Company Number: None

PATIENT
  Age: 83 Year
  Sex: Male
  Weight: 72.5755 kg

DRUGS (2)
  1. SIMVASTATIN [Suspect]
     Indication: BLOOD CHOLESTEROL DECREASED
     Dosage: 1 X DAY GENERIC FOR ZOCOR - LUPIN 68180048003
     Dates: start: 20110501, end: 20110601
  2. CRESTOR [Concomitant]

REACTIONS (2)
  - ARTHRALGIA [None]
  - MUSCULOSKELETAL PAIN [None]
